FAERS Safety Report 7985596-5 (Version None)
Quarter: 2011Q4

REPORT INFORMATION
  Report Type: 
  Country: None (occurrence: None)
  Receive Date: 20111216
  Receipt Date: 20111213
  Transmission Date: 20120403
  Serious: Yes (Death, Other)
  Sender: FDA-Public Use
  Company Number: AU-BRISTOL-MYERS SQUIBB COMPANY-15222375

PATIENT
  Age: 68 Year
  Sex: Male
  Weight: 152 kg

DRUGS (12)
  1. PHYSIOTENS [Concomitant]
  2. MELOXICAM [Concomitant]
  3. MOBIC [Concomitant]
  4. ZANEDIP [Concomitant]
     Indication: HYPERTENSION
     Route: 048
  5. PREDNISOLONE [Concomitant]
  6. LASIX [Concomitant]
     Dosage: AS NEEDED
  7. COVERSYL PLUS [Concomitant]
     Indication: HYPERTENSION
     Dosage: 1 DF: 5/1.25MG
     Route: 048
  8. ORENCIA [Suspect]
     Indication: RHEUMATOID ARTHRITIS
     Dosage: INTERRUPTED ON 08MAY09,LAST INF ON 18MAY10
     Route: 042
     Dates: start: 20080118, end: 20100518
  9. AVAPRO [Concomitant]
  10. OMEPRAZOLE [Concomitant]
     Dosage: OMEPRAZOLE GA
  11. METHOTREXATE [Concomitant]
  12. FOLIC ACID [Concomitant]

REACTIONS (2)
  - HYPERTENSION [None]
  - DEATH [None]
